FAERS Safety Report 13060058 (Version 1)
Quarter: 2016Q4

REPORT INFORMATION
  Report Type: Report from Study
  Country: US (occurrence: US)
  Receive Date: 20161223
  Receipt Date: 20161223
  Transmission Date: 20170207
  Serious: No
  Sender: FDA-Public Use
  Company Number: US-009507513-1612USA002587

PATIENT
  Sex: Male

DRUGS (5)
  1. ATORVASTATIN CALCIUM. [Concomitant]
     Active Substance: ATORVASTATIN CALCIUM
     Dosage: UNK
  2. ATORVASTATIN CALCIUM. [Concomitant]
     Active Substance: ATORVASTATIN CALCIUM
     Dosage: UNK
     Dates: start: 20161103
  3. PEMBROLIZUMAB. [Suspect]
     Active Substance: PEMBROLIZUMAB
     Dosage: UNK MG/KG, Q3WUNK
     Route: 042
     Dates: start: 20161125
  4. PROVENTIL [Concomitant]
     Active Substance: ALBUTEROL
  5. PEMBROLIZUMAB. [Suspect]
     Active Substance: PEMBROLIZUMAB
     Indication: LUNG NEOPLASM MALIGNANT
     Dosage: UNK MG/KG, Q3W
     Route: 042
     Dates: start: 20161103

REACTIONS (2)
  - Fatigue [Recovering/Resolving]
  - Head titubation [Recovering/Resolving]

NARRATIVE: CASE EVENT DATE: 2016
